FAERS Safety Report 20226658 (Version 1)
Quarter: 2021Q4

REPORT INFORMATION
  Report Type: Spontaneous
  Country: RU (occurrence: RU)
  Receive Date: 20211224
  Receipt Date: 20211224
  Transmission Date: 20220303
  Serious: Yes (Other)
  Sender: FDA-Public Use
  Company Number: RU-Accord-247993

PATIENT
  Age: 60 Year
  Sex: Female

DRUGS (7)
  1. HYDROXYCHLOROQUINE [Suspect]
     Active Substance: HYDROXYCHLOROQUINE
     Indication: COVID-19
     Dosage: LATER ABOUT 400 MG IN 24 HRS
  2. UMIFENOVIR [Concomitant]
     Active Substance: UMIFENOVIR
     Indication: COVID-19
     Dosage: 4 TIMES A DAY
  3. AZITHROMYCIN [Concomitant]
     Active Substance: AZITHROMYCIN
     Indication: COVID-19
     Dosage: 500 MG IN 24 HRS
  4. ENOXAPARIN SODIUM [Concomitant]
     Active Substance: ENOXAPARIN SODIUM
     Indication: COVID-19
     Dosage: 0.4 MG SUBCUTANEOUS
  5. CEFTRIAXONE [Concomitant]
     Active Substance: CEFTRIAXONE
     Indication: COVID-19
     Dosage: 2.0 GM/24 HRS
  6. OMEPRAZOLE [Concomitant]
     Active Substance: OMEPRAZOLE
     Indication: COVID-19
  7. AMBROXOL [Concomitant]
     Active Substance: AMBROXOL
     Indication: COVID-19

REACTIONS (1)
  - Tick-borne viral encephalitis [Unknown]
